FAERS Safety Report 16916764 (Version 7)
Quarter: 2022Q3

REPORT INFORMATION
  Report Type: Spontaneous
  Country: GB (occurrence: GB)
  Receive Date: 20191015
  Receipt Date: 20220722
  Transmission Date: 20221027
  Serious: Yes (Hospitalization, Other)
  Sender: FDA-Public Use
  Company Number: None

PATIENT
  Age: 73 Year
  Sex: Male

DRUGS (4)
  1. ATORVASTATIN [Interacting]
     Active Substance: ATORVASTATIN
     Indication: Infection
     Dosage: UNIT DOSE AND UNIT STRENGTH : 80 MG
     Route: 065
     Dates: start: 201806
  2. ATORVASTATIN [Interacting]
     Active Substance: ATORVASTATIN
     Indication: Product used for unknown indication
  3. FUSIDIC ACID [Interacting]
     Active Substance: FUSIDIC ACID
     Indication: Wound infection
     Dosage: UNK
     Route: 065
     Dates: start: 201806
  4. FLUCLOXACILLIN [Concomitant]
     Active Substance: FLUCLOXACILLIN
     Indication: Wound infection
     Dosage: UNK
     Route: 065
     Dates: start: 201806

REACTIONS (6)
  - Blood creatine phosphokinase increased [Unknown]
  - Chromaturia [Unknown]
  - Rhabdomyolysis [Unknown]
  - Myalgia [Unknown]
  - Drug interaction [Unknown]
  - Labelled drug-drug interaction medication error [Unknown]

NARRATIVE: CASE EVENT DATE: 20180731
